FAERS Safety Report 20675391 (Version 1)
Quarter: 2022Q2

REPORT INFORMATION
  Report Type: Spontaneous
  Country: FR (occurrence: FR)
  Receive Date: 20220405
  Receipt Date: 20220405
  Transmission Date: 20220721
  Serious: Yes (Other)
  Sender: FDA-Public Use
  Company Number: FR-JAZZ-2022-FR-010737

PATIENT

DRUGS (1)
  1. XYREM [Suspect]
     Active Substance: SODIUM OXYBATE
     Indication: Narcolepsy
     Dosage: DOSE: 9 GRAM, FREQUENCY: ONCE DAILY (QD
     Route: 048
     Dates: start: 20160711

REACTIONS (2)
  - Food craving [Unknown]
  - Product use issue [Unknown]

NARRATIVE: CASE EVENT DATE: 20160711
